FAERS Safety Report 5025066-X (Version None)
Quarter: 2006Q2

REPORT INFORMATION
  Report Type: 
  Country: None (occurrence: None)
  Receive Date: 20060608
  Receipt Date: 20060608
  Transmission Date: 20061013
  Serious: Yes (Hospitalization)
  Sender: FDA-Public Use
  Company Number: None

PATIENT
  Age: 51 Year
  Sex: Male
  Weight: 72.1219 kg

DRUGS (11)
  1. HEPARIN [Suspect]
     Dosage: 5000 UG/2H
     Dates: start: 20051203, end: 20051207
  2. INSULIN R SLIDING SCALE [Concomitant]
  3. OMEPRAZOLE [Concomitant]
  4. DESIPRAMINE HCL [Concomitant]
  5. THIMINE [Concomitant]
  6. MULTI-VITAMIN [Concomitant]
  7. FOLIC ACID [Concomitant]
  8. CYANOCOBALAMIN [Concomitant]
  9. LORAZEPAM [Concomitant]
  10. DEXAMETHASONE [Concomitant]
  11. PERCOCET [Concomitant]

REACTIONS (2)
  - FALL [None]
  - PLATELET COUNT DECREASED [None]
